FAERS Safety Report 6578342-3 (Version None)
Quarter: 2010Q1

REPORT INFORMATION
  Report Type: 
  Country: None (occurrence: None)
  Receive Date: 20100211
  Receipt Date: 20100201
  Transmission Date: 20100710
  Serious: Yes (Hospitalization)
  Sender: FDA-Public Use
  Company Number: JP-ROCHE-684176

PATIENT
  Sex: Female
  Weight: 42 kg

DRUGS (7)
  1. TOCILIZUMAB [Suspect]
     Indication: RHEUMATOID ARTHRITIS
     Route: 041
     Dates: start: 20090910, end: 20090910
  2. TOCILIZUMAB [Suspect]
     Route: 041
     Dates: start: 20091008, end: 20091008
  3. CELCOX [Concomitant]
     Dosage: DRUG REPORTED: CELECOX.
     Route: 048
     Dates: start: 20080903
  4. RANTAC [Concomitant]
     Dosage: DRUG REPORTED: RANITAC.
     Route: 048
     Dates: start: 20080903
  5. FESIN [Concomitant]
     Route: 041
     Dates: start: 20090528
  6. PROGRAFT [Concomitant]
     Dosage: DOSE FORM: PERORAL AGENT.
     Route: 048
     Dates: start: 20080820
  7. RHEUMATREX [Concomitant]
     Route: 048
     Dates: start: 20081004

REACTIONS (1)
  - LYMPHOMA [None]
